FAERS Safety Report 4294826-5 (Version None)
Quarter: 2004Q1

REPORT INFORMATION
  Report Type: 
  Country: None (occurrence: None)
  Receive Date: 20040216
  Receipt Date: 20030114
  Transmission Date: 20041129
  Serious: No
  Sender: FDA-Public Use
  Company Number: US-GLAXOSMITHKLINE-A0392417A

PATIENT
  Age: 39 Year
  Sex: Male

DRUGS (4)
  1. LAMICTAL [Suspect]
     Route: 048
  2. CARBATROL [Concomitant]
  3. KEPPRA [Concomitant]
  4. UNSPECIFIED MEDICATION [Concomitant]
     Indication: MIGRAINE

REACTIONS (1)
  - SWELLING FACE [None]
